FAERS Safety Report 21389570 (Version 9)
Quarter: 2022Q4

REPORT INFORMATION
  Report Type: Spontaneous
  Country: CA (occurrence: CA)
  Receive Date: 20220929
  Receipt Date: 20221201
  Transmission Date: 20230113
  Serious: Yes (Hospitalization, Other)
  Sender: FDA-Public Use
  Company Number: CA-CELLTRION INC.-2022CA010454

PATIENT

DRUGS (8)
  1. INFLECTRA [Suspect]
     Active Substance: INFLIXIMAB-DYYB
     Indication: Hidradenitis
     Dosage: 7.5 MG/KG, AT WEEK 0,2 THEN EVERY 4 WEEKS
     Route: 042
     Dates: start: 20220816, end: 20221024
  2. INFLECTRA [Suspect]
     Active Substance: INFLIXIMAB-DYYB
     Dosage: 1 DF, 7.5 MG/KG AT WEEK 0,2 THEN EVERY 4 WEEKS
     Route: 042
     Dates: start: 20220816, end: 20220929
  3. INFLECTRA [Suspect]
     Active Substance: INFLIXIMAB-DYYB
     Dosage: 7.5 MG/KG, AT WEEK 0,2 THEN EVERY 4 WEEKS
     Route: 042
     Dates: start: 20220916
  4. INFLECTRA [Suspect]
     Active Substance: INFLIXIMAB-DYYB
     Dosage: 7.5 MG/KG, AT WEEK 0,2 THEN EVERY 4 WEEKS
     Route: 042
     Dates: start: 20220929
  5. INFLECTRA [Suspect]
     Active Substance: INFLIXIMAB-DYYB
     Dosage: 1 DF 7.5 MG/KG Q 0, 2, 6 WEEKS THEN EVERY 4 WEEKS, REINDUCTION
     Route: 042
     Dates: start: 20221024
  6. INFLECTRA [Suspect]
     Active Substance: INFLIXIMAB-DYYB
     Dosage: 1 DF 7.5 MG/KG Q 0, 2, 6 WEEKS THEN EVERY 4 WEEKS, REINDUCTION
     Route: 042
     Dates: start: 20221024
  7. INFLECTRA [Suspect]
     Active Substance: INFLIXIMAB-DYYB
     Dosage: 675 MG, 1 DF 7.5 MG/KG Q 0, 2, 6 WEEKS THEN EVERY 4 WEEKS, REINDUCTION
     Route: 042
     Dates: start: 20221118
  8. CEFTRIAXONE [Concomitant]
     Active Substance: CEFTRIAXONE
     Dosage: 1 DF DOSAGE UNKNOWN
     Route: 065

REACTIONS (27)
  - Dyspnoea [Recovering/Resolving]
  - Chest discomfort [Not Recovered/Not Resolved]
  - Bone pain [Not Recovered/Not Resolved]
  - Renal pain [Not Recovered/Not Resolved]
  - Tremor [Not Recovered/Not Resolved]
  - Hypersensitivity [Recovered/Resolved]
  - Chest pain [Not Recovered/Not Resolved]
  - Musculoskeletal chest pain [Not Recovered/Not Resolved]
  - Chest pain [Recovered/Resolved]
  - Infection [Unknown]
  - Cardiac pacemaker insertion [Not Recovered/Not Resolved]
  - Hot flush [Recovered/Resolved]
  - Erythema [Recovering/Resolving]
  - Headache [Recovered/Resolved]
  - Micturition urgency [Recovering/Resolving]
  - Diarrhoea [Recovering/Resolving]
  - Poor venous access [Unknown]
  - Bedridden [Unknown]
  - Limb discomfort [Not Recovered/Not Resolved]
  - Oedema [Not Recovered/Not Resolved]
  - Discomfort [Unknown]
  - Malaise [Not Recovered/Not Resolved]
  - Condition aggravated [Unknown]
  - Off label use [Unknown]
  - Incorrect dose administered [Unknown]
  - Inappropriate schedule of product administration [Unknown]
  - Incorrect product administration duration [Unknown]

NARRATIVE: CASE EVENT DATE: 20220101
